FAERS Safety Report 4330432-1 (Version None)
Quarter: 2004Q2

REPORT INFORMATION
  Report Type: 
  Country: None (occurrence: None)
  Receive Date: 20040402
  Receipt Date: 20040226
  Transmission Date: 20050107
  Serious: No
  Sender: FDA-Public Use
  Company Number: US-BRISTOL-MYERS SQUIBB COMPANY-12523403

PATIENT
  Age: 50 Year
  Sex: Male

DRUGS (5)
  1. STAVUDINE [Suspect]
     Indication: HIV INFECTION
     Dates: start: 19990801, end: 19991101
  2. DIDANOSINE [Suspect]
     Indication: HIV INFECTION
     Dates: start: 19990801, end: 19991101
  3. HYDROXYUREA [Suspect]
     Dates: start: 19990801, end: 19991101
  4. NORVIR [Suspect]
     Dates: start: 19990801, end: 19991101
  5. INDINAVIR [Suspect]
     Dates: start: 19990801, end: 19991101

REACTIONS (1)
  - GASTROINTESTINAL DISORDER [None]
